FAERS Safety Report 11770192 (Version 2)
Quarter: 2015Q4

REPORT INFORMATION
  Report Type: Spontaneous
  Country: US (occurrence: US)
  Receive Date: 20151123
  Receipt Date: 20151207
  Transmission Date: 20160304
  Serious: Yes (Other)
  Sender: FDA-Public Use
  Company Number: US-FRI-1000081023

PATIENT
  Age: 57 Year
  Sex: Female

DRUGS (4)
  1. MANY UNSPECIFIED MEDICATIONS [Concomitant]
  2. LINZESS [Suspect]
     Active Substance: LINACLOTIDE
     Indication: IRRITABLE BOWEL SYNDROME
     Dosage: 145 MCG
     Route: 048
     Dates: start: 201510, end: 20151105
  3. LINZESS [Suspect]
     Active Substance: LINACLOTIDE
     Dosage: 290 MCG
     Route: 048
     Dates: start: 20151106, end: 20151113
  4. IMMUNOSUPPRESANT (UNSPECIFIED) [Concomitant]

REACTIONS (4)
  - Swollen tongue [Recovering/Resolving]
  - Anaphylactic reaction [Recovering/Resolving]
  - Pharyngeal oedema [Recovering/Resolving]
  - Upper respiratory fungal infection [Recovering/Resolving]

NARRATIVE: CASE EVENT DATE: 20151109
